FAERS Safety Report 13586148 (Version 1)
Quarter: 2017Q2

REPORT INFORMATION
  Report Type: Spontaneous
  Country: US (occurrence: US)
  Receive Date: 20170526
  Receipt Date: 20170526
  Transmission Date: 20170830
  Serious: No
  Sender: FDA-Public Use
  Company Number: None

PATIENT
  Age: 36 Year
  Sex: Male
  Weight: 71.28 kg

DRUGS (2)
  1. XIIDRA [Suspect]
     Active Substance: LIFITEGRAST
     Indication: CORNEAL DEGENERATION
     Route: 061
     Dates: start: 201702, end: 201703
  2. XIIDRA [Suspect]
     Active Substance: LIFITEGRAST
     Indication: DRY EYE
     Route: 061
     Dates: start: 201702, end: 201703

REACTIONS (1)
  - Eczema [None]

NARRATIVE: CASE EVENT DATE: 201702
